FAERS Safety Report 15245390 (Version 2)
Quarter: 2018Q4

REPORT INFORMATION
  Report Type: Spontaneous
  Country: US (occurrence: US)
  Receive Date: 20180806
  Receipt Date: 20181004
  Transmission Date: 20190204
  Serious: Yes (Death)
  Sender: FDA-Public Use
  Company Number: US-GUERBET-US-20180118

PATIENT

DRUGS (2)
  1. LIPIODOL [Suspect]
     Active Substance: ETHIODIZED OIL
     Indication: THERAPEUTIC EMBOLISATION
     Route: 042
  2. SODIUM TETRADECYL SULFATE [Suspect]
     Active Substance: SODIUM TETRADECYL SULFATE
     Indication: THERAPEUTIC EMBOLISATION
     Route: 042

REACTIONS (3)
  - Pulmonary embolism [Fatal]
  - Venous aneurysm [Fatal]
  - Product use in unapproved indication [Fatal]
